FAERS Safety Report 12385474 (Version 12)
Quarter: 2022Q4

REPORT INFORMATION
  Report Type: Report from Study
  Country: AR (occurrence: AR)
  Receive Date: 20160519
  Receipt Date: 20221012
  Transmission Date: 20230113
  Serious: Yes (Other)
  Sender: FDA-Public Use
  Company Number: PHHY2016AR068913

PATIENT
  Age: 69 Year
  Sex: Female

DRUGS (21)
  1. SANDOSTATIN LAR DEPOT [Suspect]
     Active Substance: OCTREOTIDE ACETATE
     Indication: Acromegaly
     Dosage: 1 DOSE OF 20 MG EVERY 28 DAYS (STOPPED APPROXIMATELY 3 MONTHS AGO)
     Route: 065
     Dates: start: 201505
  2. SANDOSTATIN LAR DEPOT [Suspect]
     Active Substance: OCTREOTIDE ACETATE
     Indication: Gigantism
     Dosage: 1 DOSE OF 20 MG EVERY 40/45  DAYS
     Route: 065
     Dates: start: 20160309
  3. SANDOSTATIN LAR DEPOT [Suspect]
     Active Substance: OCTREOTIDE ACETATE
  4. VILDAGLIPTIN [Suspect]
     Active Substance: VILDAGLIPTIN
     Indication: Diabetes mellitus
     Dosage: 50 MG, BID
     Route: 065
  5. VILDAGLIPTIN [Suspect]
     Active Substance: VILDAGLIPTIN
     Indication: Type 2 diabetes mellitus
  6. LEVOTHYROXINE [Concomitant]
     Active Substance: LEVOTHYROXINE
     Indication: Product used for unknown indication
     Dosage: 75 MG, QW5
     Route: 065
  7. LEVOTHYROXINE [Concomitant]
     Active Substance: LEVOTHYROXINE
     Dosage: 50 MG, QW2
     Route: 065
  8. LEVOTHYROXINE [Concomitant]
     Active Substance: LEVOTHYROXINE
     Dosage: 88 MG, QD
     Route: 065
  9. CORTISONE [Concomitant]
     Active Substance: CORTISONE
     Indication: Product used for unknown indication
     Dosage: 20 MG (5 MG AND 15 MG), UNK
     Route: 065
  10. OMEPRAZOLE [Concomitant]
     Active Substance: OMEPRAZOLE
     Indication: Product used for unknown indication
     Dosage: 20 MG, QD
     Route: 065
  11. ASPIRIN [Concomitant]
     Active Substance: ASPIRIN
     Indication: Product used for unknown indication
     Dosage: 1 DF, QD
     Route: 065
  12. CLONAZEPAM [Concomitant]
     Active Substance: CLONAZEPAM
     Indication: Product used for unknown indication
     Dosage: 1 DF, QHS
     Route: 065
  13. VITAMIN D [Concomitant]
     Active Substance: VITAMIN D NOS
     Indication: Product used for unknown indication
     Dosage: 1 DF, QMO
     Route: 065
  14. VITAMIN D [Concomitant]
     Active Substance: VITAMIN D NOS
     Dosage: UNK (EVERY 2 MONTHS)
     Route: 065
  15. FERROMAX B12 [Concomitant]
     Indication: Product used for unknown indication
     Dosage: UNK
     Route: 065
  16. ATORVASTATIN [Concomitant]
     Active Substance: ATORVASTATIN
     Indication: Blood cholesterol abnormal
     Dosage: 20 MG, QD
     Route: 065
  17. LACTULOSE [Concomitant]
     Active Substance: LACTULOSE
     Indication: Product used for unknown indication
     Dosage: UNK
     Route: 065
  18. EZETIMIBE [Concomitant]
     Active Substance: EZETIMIBE
     Indication: Product used for unknown indication
     Dosage: 10 MG, QD
     Route: 065
  19. POLPER B12 [Concomitant]
     Indication: Product used for unknown indication
     Dosage: 1 OT, QD
     Route: 065
  20. LACTULON [Concomitant]
     Indication: Product used for unknown indication
     Dosage: 10 ML, QD
     Route: 065
  21. SERTRALINE [Concomitant]
     Active Substance: SERTRALINE HYDROCHLORIDE
     Indication: Product used for unknown indication
     Dosage: 100 MG, QD (2 OF 100 MG)
     Route: 065

REACTIONS (42)
  - Neoplasm [Not Recovered/Not Resolved]
  - Type 2 diabetes mellitus [Unknown]
  - Loss of consciousness [Not Recovered/Not Resolved]
  - Rectal haemorrhage [Recovered/Resolved]
  - Cerebral small vessel ischaemic disease [Unknown]
  - Deafness [Unknown]
  - Apnoea [Unknown]
  - Haematoma [Recovering/Resolving]
  - Alopecia [Not Recovered/Not Resolved]
  - Hypersomnia [Unknown]
  - Memory impairment [Unknown]
  - Pharyngitis [Recovered/Resolved]
  - Hyperhidrosis [Not Recovered/Not Resolved]
  - Cognitive disorder [Unknown]
  - Anxiety [Unknown]
  - Tremor [Unknown]
  - Fall [Recovered/Resolved]
  - Balance disorder [Unknown]
  - Reading disorder [Unknown]
  - Osteoarthritis [Unknown]
  - Dyspnoea [Unknown]
  - Sleep apnoea syndrome [Unknown]
  - Gait disturbance [Unknown]
  - Mobility decreased [Unknown]
  - Depression [Unknown]
  - Hypertension [Unknown]
  - Haemorrhoids [Unknown]
  - Dental caries [Unknown]
  - Benign neoplasm [Unknown]
  - Nervousness [Unknown]
  - Somnolence [Unknown]
  - Tooth fracture [Unknown]
  - Weight decreased [Unknown]
  - Ligament sprain [Unknown]
  - Fall [Unknown]
  - Inappropriate schedule of product administration [Unknown]
  - Fatigue [Unknown]
  - Asthenia [Not Recovered/Not Resolved]
  - Headache [Unknown]
  - Malaise [Unknown]
  - Dizziness [Recovered/Resolved]
  - Injection site discomfort [Recovered/Resolved]

NARRATIVE: CASE EVENT DATE: 20160101
